FAERS Safety Report 7893646-X (Version None)
Quarter: 2011Q4

REPORT INFORMATION
  Report Type: 
  Country: None (occurrence: None)
  Receive Date: 20111104
  Receipt Date: 20111028
  Transmission Date: 20120403
  Serious: Yes (Hospitalization)
  Sender: FDA-Public Use
  Company Number: FR-GLAXOSMITHKLINE-B0759051A

PATIENT
  Sex: Female

DRUGS (23)
  1. AMLODIPINE BESYLATE [Concomitant]
     Dosage: 10MG PER DAY
  2. TIORFAN [Concomitant]
     Dosage: 1TAB THREE TIMES PER DAY
     Route: 048
     Dates: start: 20110930
  3. PREDNISONE [Concomitant]
     Dosage: 60MG PER DAY
  4. SPECIAFOLDINE [Concomitant]
     Dosage: 5MG PER DAY
  5. VALGANCICLOVIR HCL [Concomitant]
     Dates: end: 20110913
  6. LASIX [Concomitant]
     Dosage: 500MG PER DAY
     Dates: start: 20110930, end: 20111001
  7. CEFTAZIDIME SODIUM [Suspect]
     Indication: BACTERIAL PYELONEPHRITIS
     Dosage: 1G PER DAY
     Route: 033
     Dates: start: 20111001, end: 20111008
  8. ACUPAN [Concomitant]
     Dates: start: 20111002
  9. NEBIVOLOL [Concomitant]
     Dosage: 5MG PER DAY
  10. GENTAMICIN [Concomitant]
     Route: 033
     Dates: start: 20110930, end: 20110930
  11. CEFACIDAL [Concomitant]
     Indication: BACTERIAL PYELONEPHRITIS
     Route: 033
     Dates: start: 20111001, end: 20111005
  12. ACETAMINOPHEN [Concomitant]
     Dates: start: 20111002
  13. LEXOMIL [Concomitant]
     Dates: end: 20111001
  14. GENTAMICIN [Concomitant]
     Dates: start: 20110930
  15. ROCEPHIN [Concomitant]
     Dosage: 200MG SINGLE DOSE
     Dates: start: 20110930, end: 20110930
  16. CRESTOR [Concomitant]
     Dosage: 10MG PER DAY
  17. IMURAN [Concomitant]
     Indication: PROPHYLAXIS AGAINST TRANSPLANT REJECTION
     Dosage: 50MG TWICE PER DAY
     Route: 048
     Dates: start: 20110930
  18. REPAGLINIDE [Concomitant]
     Dosage: 20MG TWICE PER DAY
  19. PERITONEAL DIALYSIS [Concomitant]
     Indication: BACTERIAL PYELONEPHRITIS
  20. METHOXY POLYETHYLENE GLYCOL-EPOETIN BETA [Concomitant]
     Indication: ANAEMIA
     Route: 042
     Dates: start: 20111001, end: 20111010
  21. ALUMINUM HYDROXIDE AND MAGNESIUM TRISILICATE [Concomitant]
     Dosage: 1SAC THREE TIMES PER DAY
     Route: 048
     Dates: start: 20110930
  22. ACETAMINOPHEN [Concomitant]
     Route: 042
     Dates: start: 20110930
  23. MYCOPHENOLATE MOFETIL (CELLCEPT) [Concomitant]
     Indication: PROPHYLAXIS AGAINST TRANSPLANT REJECTION
     Dosage: 500MG TWICE PER DAY
     Dates: end: 20110930

REACTIONS (4)
  - HEADACHE [None]
  - TREMOR [None]
  - CONFUSIONAL STATE [None]
  - PUPILS UNEQUAL [None]
